FAERS Safety Report 11685463 (Version 1)
Quarter: 2015Q4

REPORT INFORMATION
  Report Type: Spontaneous
  Country: US (occurrence: None)
  Receive Date: 20151029
  Receipt Date: 20151029
  Transmission Date: 20160304
  Serious: Yes (Hospitalization)
  Sender: FDA-Public Use
  Company Number: None

PATIENT
  Age: 63 Year
  Sex: Male
  Weight: 86.6 kg

DRUGS (2)
  1. IBUPROFEN. [Suspect]
     Active Substance: IBUPROFEN
     Indication: PAIN
     Dates: start: 20150926, end: 20151001
  2. CLOPIDOGREL [Suspect]
     Active Substance: CLOPIDOGREL BISULFATE
     Indication: CORONARY ARTERIAL STENT INSERTION
     Route: 048
     Dates: start: 20141108, end: 20151003

REACTIONS (8)
  - Melaena [None]
  - Gastric haemorrhage [None]
  - Erosive duodenitis [None]
  - Haematemesis [None]
  - Nausea [None]
  - Blood pressure decreased [None]
  - Haemoglobin decreased [None]
  - Gastrointestinal mucosa hyperaemia [None]

NARRATIVE: CASE EVENT DATE: 20151002
